FAERS Safety Report 5857971-6 (Version None)
Quarter: 2008Q3

REPORT INFORMATION
  Report Type: 
  Country: None (occurrence: None)
  Receive Date: 20080826
  Receipt Date: 20080818
  Transmission Date: 20090109
  Serious: Yes (Other)
  Sender: FDA-Public Use
  Company Number: GB-ABBOTT-08P-167-0448441-00

PATIENT
  Sex: Female
  Weight: 85 kg

DRUGS (4)
  1. HUMIRA [Suspect]
     Indication: CROHN'S DISEASE
     Route: 058
     Dates: start: 20080325
  2. AZATHIOPRINE [Concomitant]
     Indication: CROHN'S DISEASE
     Route: 048
     Dates: start: 20050101
  3. CIPROFLOXACIN [Concomitant]
     Indication: GASTROINTESTINAL FISTULA
     Route: 048
     Dates: start: 20080205, end: 20080306
  4. CIPROFLOXACIN [Concomitant]
     Indication: FISTULA DISCHARGE

REACTIONS (3)
  - EPISCLERITIS [None]
  - INFLUENZA LIKE ILLNESS [None]
  - PURPURA [None]
